FAERS Safety Report 19090724 (Version 2)
Quarter: 2021Q2

REPORT INFORMATION
  Report Type: Spontaneous
  Country: US (occurrence: US)
  Receive Date: 20210405
  Receipt Date: 20210418
  Transmission Date: 20210717
  Serious: No
  Sender: FDA-Public Use
  Company Number: US-AMGEN-USASP2021049447

PATIENT
  Age: 68 Year
  Sex: Male

DRUGS (1)
  1. REPATHA [Suspect]
     Active Substance: EVOLOCUMAB
     Indication: BLOOD CHOLESTEROL INCREASED
     Dosage: 140 MILLIGRAM, Q2WK
     Route: 065
     Dates: start: 202101, end: 20210330

REACTIONS (5)
  - Feeling hot [Unknown]
  - Rash [Unknown]
  - Piloerection [Unknown]
  - Acne [Unknown]
  - Pruritus [Unknown]

NARRATIVE: CASE EVENT DATE: 20210326
